FAERS Safety Report 18948035 (Version 4)
Quarter: 2022Q2

REPORT INFORMATION
  Report Type: Spontaneous
  Country: GB (occurrence: GB)
  Receive Date: 20210226
  Receipt Date: 20220405
  Transmission Date: 20220721
  Serious: Yes (Hospitalization, Other)
  Sender: FDA-Public Use
  Company Number: GB-ROCHE-1674800

PATIENT
  Age: 50 Year
  Sex: Female

DRUGS (15)
  1. DOCETAXEL [Suspect]
     Active Substance: DOCETAXEL
     Indication: HER2 positive breast cancer
     Dosage: 160 MG, Q3W
     Route: 042
     Dates: start: 20150722, end: 20151104
  2. TRASTUZUMAB [Suspect]
     Active Substance: TRASTUZUMAB
     Indication: HER2 positive breast cancer
     Dosage: 900 MG, Q3W (LOADING DOSE)
     Route: 042
     Dates: start: 20150722, end: 20150722
  3. TRASTUZUMAB [Suspect]
     Active Substance: TRASTUZUMAB
     Dosage: 675 MG, Q3W (MAINTENANCE DOSE)
     Route: 042
     Dates: start: 20150812, end: 20171219
  4. TRASTUZUMAB [Suspect]
     Active Substance: TRASTUZUMAB
     Dosage: 525 MG, Q3W (MAINTENANCE DOSE)
     Route: 042
     Dates: start: 20180109, end: 20180220
  5. LETROZOLE [Suspect]
     Active Substance: LETROZOLE
     Indication: HER2 positive breast cancer
     Dosage: 2.5 MG,QD
     Route: 048
     Dates: start: 20151124
  6. PERTUZUMAB [Suspect]
     Active Substance: PERTUZUMAB
     Indication: HER2 positive breast cancer
     Dosage: 840 MG, Q3W (LOADING DOSE)
     Route: 042
     Dates: start: 20150722, end: 20150722
  7. PERTUZUMAB [Suspect]
     Active Substance: PERTUZUMAB
     Indication: Breast cancer metastatic
     Dosage: 420 MG,QW
     Route: 042
     Dates: start: 20150812
  8. PERTUZUMAB [Suspect]
     Active Substance: PERTUZUMAB
     Dosage: 420 MG, Q3W (MAINTENANCE DOSE)
     Route: 042
     Dates: start: 20150812, end: 20180220
  9. BENDROFLUMETHIAZIDE [Concomitant]
     Active Substance: BENDROFLUMETHIAZIDE
     Dosage: 2.5 MG,UNK
     Route: 048
  10. BENDROFLUMETHIAZIDE [Concomitant]
     Active Substance: BENDROFLUMETHIAZIDE
     Dosage: 2.5 MG
     Route: 048
  11. DEXAMETHASONE [Concomitant]
     Active Substance: DEXAMETHASONE
     Indication: Prophylaxis
     Dosage: 2 MG (3 DAYS STARTING A DAY BEFORE CHEMOTHERAPY)
     Route: 048
     Dates: start: 20150806
  12. DEXAMETHASONE [Concomitant]
     Active Substance: DEXAMETHASONE
     Dosage: 2 MG
     Route: 048
     Dates: start: 20150901, end: 20150903
  13. NAPROXEN [Concomitant]
     Active Substance: NAPROXEN
     Dosage: 1 DF,PRN
     Route: 048
  14. LOPERAMIDE [Concomitant]
     Active Substance: LOPERAMIDE
     Indication: Prophylaxis
     Dosage: 2 MG (1 OR 2 CAPSULES, MAXIMUM 8 TIMES A DAY)
     Route: 048
     Dates: start: 20150804, end: 20180323
  15. NAPROXEN SODIUM [Concomitant]
     Active Substance: NAPROXEN SODIUM
     Dosage: UNK
     Route: 048

REACTIONS (23)
  - Ejection fraction decreased [Recovered/Resolved]
  - Chest discomfort [Recovered/Resolved]
  - Cellulitis [Recovered/Resolved]
  - Bronchitis [Recovered/Resolved]
  - Laryngitis [Unknown]
  - Urinary tract infection [Recovered/Resolved]
  - Erythema [Recovered/Resolved]
  - Hypokalaemia [Recovered/Resolved]
  - Skin exfoliation [Not Recovered/Not Resolved]
  - Nail dystrophy [Recovered/Resolved]
  - Onychomadesis [Recovered/Resolved]
  - Neutropenic sepsis [Recovered/Resolved]
  - Dysphagia [Not Recovered/Not Resolved]
  - Myelosuppression [Recovered/Resolved]
  - Fatigue [Recovered/Resolved]
  - Neuropathy peripheral [Not Recovered/Not Resolved]
  - Decreased appetite [Recovered/Resolved]
  - Oedema peripheral [Recovered/Resolved]
  - Myalgia [Recovered/Resolved]
  - Dyspepsia [Recovered/Resolved]
  - Dysgeusia [Recovered/Resolved]
  - Ejection fraction decreased [Recovered/Resolved]
  - Myalgia [Recovered/Resolved]

NARRATIVE: CASE EVENT DATE: 20150813
